FAERS Safety Report 9218847 (Version 1)
Quarter: 2013Q2

REPORT INFORMATION
  Report Type: Spontaneous
  Country: US (occurrence: None)
  Receive Date: 20130405
  Receipt Date: 20130405
  Transmission Date: 20140414
  Serious: Yes (Other)
  Sender: FDA-Public Use
  Company Number: None

PATIENT
  Age: 50 Year
  Sex: Female
  Weight: 81.65 kg

DRUGS (2)
  1. LEVOXYL [Suspect]
     Dates: start: 19850101, end: 20130330
  2. LEVOXYL [Suspect]

REACTIONS (1)
  - Product odour abnormal [None]
